FAERS Safety Report 5337507-9 (Version None)
Quarter: 2007Q2

REPORT INFORMATION
  Report Type: 
  Country: None (occurrence: None)
  Receive Date: 20070529
  Receipt Date: 20070517
  Transmission Date: 20071010
  Serious: Yes (Hospitalization)
  Sender: FDA-Public Use
  Company Number: US-AMGEN-STX225424

PATIENT
  Sex: Female

DRUGS (4)
  1. ENBREL [Suspect]
     Indication: RHEUMATOID ARTHRITIS
     Route: 058
     Dates: start: 19990819
  2. ARAVA [Concomitant]
     Route: 048
     Dates: start: 19980101
  3. SULFASALAZINE [Concomitant]
     Route: 048
     Dates: start: 20050101
  4. PLAQUENIL [Concomitant]
     Route: 048
     Dates: start: 19890101

REACTIONS (3)
  - ARTHRALGIA [None]
  - CUTIS LAXA [None]
  - OBESITY [None]
